FAERS Safety Report 8919322 (Version 1)
Quarter: 2012Q4

REPORT INFORMATION
  Report Type: 
  Country: US (occurrence: US)
  Receive Date: 20121121
  Receipt Date: 20121121
  Transmission Date: 20130627
  Serious: No
  Sender: FDA-Public Use
  Company Number: US-PFIZER INC-2012288221

PATIENT
  Age: 27 Year
  Sex: Male
  Weight: 68.03 kg

DRUGS (1)
  1. ADVIL [Suspect]
     Indication: MIGRAINE HEADACHE
     Dosage: 200 mg, two times a day
     Route: 048
     Dates: start: 20121110, end: 201211

REACTIONS (1)
  - Drug ineffective [Unknown]
